FAERS Safety Report 5870220-8 (Version None)
Quarter: 2008Q3

REPORT INFORMATION
  Report Type: 
  Country: None (occurrence: None)
  Receive Date: 20080904
  Receipt Date: 20080903
  Transmission Date: 20090109
  Serious: Yes (Other)
  Sender: FDA-Public Use
  Company Number: US-BRISTOL-MYERS SQUIBB COMPANY-14323000

PATIENT

DRUGS (2)
  1. CYCLOPHOSPHAMIDE [Suspect]
  2. TAXOTERE [Suspect]

REACTIONS (1)
  - OPTIC NEURITIS [None]
